FAERS Safety Report 11127326 (Version 2)
Quarter: 2015Q2

REPORT INFORMATION
  Report Type: Report from Study
  Country: VE (occurrence: VE)
  Receive Date: 20150521
  Receipt Date: 20150604
  Transmission Date: 20150821
  Serious: Yes (Hospitalization, Other)
  Sender: FDA-Public Use
  Company Number: VE-ABBVIE-15K-178-1392195-00

PATIENT
  Age: 49 Year
  Sex: Female
  Weight: 53 kg

DRUGS (1)
  1. HUMIRA [Suspect]
     Active Substance: ADALIMUMAB
     Indication: RHEUMATOID ARTHRITIS
     Route: 058
     Dates: start: 20140616, end: 201502

REACTIONS (2)
  - Lower respiratory tract infection fungal [Recovering/Resolving]
  - Tuberculosis [Recovering/Resolving]

NARRATIVE: CASE EVENT DATE: 201503
